FAERS Safety Report 10159884 (Version 1)
Quarter: 2014Q2

REPORT INFORMATION
  Report Type: Spontaneous
  Country: US (occurrence: None)
  Receive Date: 20140507
  Receipt Date: 20140507
  Transmission Date: 20141212
  Serious: Yes (Death)
  Sender: FDA-Public Use
  Company Number: None

PATIENT
  Age: 74 Year
  Sex: Male
  Weight: 127.01 kg

DRUGS (19)
  1. ALBUTEROL SULFATE [Suspect]
     Indication: CHRONIC OBSTRUCTIVE PULMONARY DISEASE
     Route: 055
     Dates: start: 2004, end: 20130905
  2. NORVASC [Concomitant]
  3. LASIX [Concomitant]
  4. JANUVIA [Concomitant]
  5. LISINOPRIL [Concomitant]
  6. FLOMAX [Concomitant]
  7. GLUCOTROL [Concomitant]
  8. STOOL SOFTENER [Concomitant]
  9. ATIVAN [Concomitant]
  10. THEOPHYLINE [Concomitant]
  11. PAXIL [Concomitant]
  12. PREDNISONE [Concomitant]
  13. ZAROXOLYN [Concomitant]
  14. ASPIRIN [Suspect]
  15. PRILOSEC [Concomitant]
  16. SPIRIVA [Concomitant]
  17. PRO AIR HFA [Concomitant]
  18. FORADILE AEROLIZER [Concomitant]
  19. ALBUTEROL [Concomitant]

REACTIONS (8)
  - Dyspnoea [None]
  - Oxygen saturation decreased [None]
  - Anaemia [None]
  - Blood blister [None]
  - Drug ineffective [None]
  - Renal impairment [None]
  - Fluid retention [None]
  - Coma [None]
